FAERS Safety Report 5079927-6 (Version None)
Quarter: 2006Q3

REPORT INFORMATION
  Report Type: 
  Country: None (occurrence: None)
  Receive Date: 20060809
  Receipt Date: 20060731
  Transmission Date: 20061208
  Serious: Yes (Other)
  Sender: FDA-Public Use
  Company Number: VISP-PR-0607L-0499

PATIENT
  Age: 30 Year
  Sex: Female

DRUGS (2)
  1. VISIPAQUE [Suspect]
     Indication: CHEST DISCOMFORT
     Dosage: 150 ML, SINGLE DOSE, I.V.
     Route: 042
  2. VISIPAQUE [Suspect]
     Indication: PARAESTHESIA
     Dosage: 150 ML, SINGLE DOSE, I.V.
     Route: 042

REACTIONS (2)
  - ACUTE GENERALISED EXANTHEMATOUS PUSTULOSIS [None]
  - SKIN EXFOLIATION [None]
